FAERS Safety Report 8509653-X (Version None)
Quarter: 2012Q3

REPORT INFORMATION
  Report Type: 
  Country: None (occurrence: None)
  Receive Date: 20120713
  Receipt Date: 20120706
  Transmission Date: 20120928
  Serious: Yes (Other)
  Sender: FDA-Public Use
  Company Number: US-CELGENEUS-163-21880-12051835

PATIENT
  Sex: Male

DRUGS (6)
  1. MULTI-VITAMINS [Concomitant]
     Route: 065
     Dates: start: 20090901
  2. WARFARIN SODIUM [Concomitant]
     Dosage: 7.5 MILLIGRAM
     Route: 065
     Dates: start: 20120705
  3. DEXAMETHASONE [Concomitant]
     Indication: MULTIPLE MYELOMA
     Route: 065
     Dates: start: 20090901
  4. WARFARIN SODIUM [Concomitant]
     Dosage: 7.5//7.5/5 MG
     Route: 065
     Dates: start: 20120608
  5. REVLIMID [Suspect]
     Indication: MULTIPLE MYELOMA
     Dosage: 25 MILLIGRAM
     Route: 048
     Dates: start: 20090101
  6. FLOMAX [Concomitant]
     Dosage: .4 MILLIGRAM
     Route: 065
     Dates: start: 20090901

REACTIONS (2)
  - CONTUSION [None]
  - HAEMORRHAGIC DIATHESIS [None]
